FAERS Safety Report 4520340-5 (Version None)
Quarter: 2004Q4

REPORT INFORMATION
  Report Type: 
  Country: None (occurrence: None)
  Receive Date: 20041207
  Receipt Date: 20041125
  Transmission Date: 20050328
  Serious: Yes (Death, Life-Threatening, Hospitalization)
  Sender: FDA-Public Use
  Company Number: FR-GLAXOSMITHKLINE-B0358118A

PATIENT
  Age: 38 Year
  Sex: Female
  Weight: 60 kg

DRUGS (4)
  1. ABACAVIR SULFATE + LAMIVUDINE [Suspect]
     Indication: HIV INFECTION
     Dosage: 900MG PER DAY
     Route: 048
     Dates: start: 20040803, end: 20041101
  2. GW433908 [Suspect]
     Indication: HIV INFECTION
     Dosage: 700MG TWICE PER DAY
     Route: 048
     Dates: start: 20040803, end: 20041101
  3. RITONAVIR [Suspect]
     Indication: HIV INFECTION
     Dosage: 100MG TWICE PER DAY
     Route: 048
     Dates: start: 20040803, end: 20041101
  4. CO-TRIMOXAZOLE [Concomitant]
     Indication: PROPHYLAXIS
     Route: 048
     Dates: start: 20040715

REACTIONS (15)
  - ABNORMAL BEHAVIOUR [None]
  - COMA [None]
  - CONVULSION [None]
  - CSF GLUCOSE DECREASED [None]
  - DEPRESSED LEVEL OF CONSCIOUSNESS [None]
  - DRUG SCREEN POSITIVE [None]
  - ELECTROCARDIOGRAM REPOLARISATION ABNORMALITY [None]
  - ENCEPHALITIS [None]
  - HEADACHE [None]
  - LEUKOPENIA [None]
  - MENINGITIS BACTERIAL [None]
  - MUSCULOSKELETAL STIFFNESS [None]
  - TACHYCARDIA [None]
  - VITH NERVE PARALYSIS [None]
  - VOMITING [None]
